FAERS Safety Report 16821132 (Version 1)
Quarter: 2019Q3

REPORT INFORMATION
  Report Type: Spontaneous
  Country: US (occurrence: US)
  Receive Date: 20190918
  Receipt Date: 20190918
  Transmission Date: 20191005
  Serious: No
  Sender: FDA-Public Use
  Company Number: US-009507513-1909USA002539

PATIENT
  Age: 62 Year
  Sex: Male

DRUGS (4)
  1. PROVENTIL [Suspect]
     Active Substance: ALBUTEROL
     Indication: ASTHMA
     Dosage: UNK, PRN
     Dates: start: 2019
  2. PROVENTIL [Suspect]
     Active Substance: ALBUTEROL
     Dosage: UNK, PRN
     Dates: start: 201905
  3. PROVENTIL [Suspect]
     Active Substance: ALBUTEROL
     Dosage: UNK, PRN
     Dates: start: 2016
  4. PROVENTIL [Suspect]
     Active Substance: ALBUTEROL
     Dosage: UNK UNK, PRN
     Dates: start: 201907

REACTIONS (5)
  - Poor quality device used [Unknown]
  - Poor quality device used [Unknown]
  - Product quality issue [Unknown]
  - No adverse event [Unknown]
  - Product quality issue [Unknown]

NARRATIVE: CASE EVENT DATE: 20190528
